FAERS Safety Report 13374366 (Version 1)
Quarter: 2017Q1

REPORT INFORMATION
  Report Type: Spontaneous
  Country: JP (occurrence: JP)
  Receive Date: 20170327
  Receipt Date: 20170327
  Transmission Date: 20170429
  Serious: Yes (Other)
  Sender: FDA-Public Use
  Company Number: JP-TEVA-201703_00000105

PATIENT

DRUGS (3)
  1. AMOLIN CAPSULES 125 [Suspect]
     Active Substance: AMOXICILLIN
     Indication: HELICOBACTER INFECTION
     Dosage: 1500 MILLIGRAM DAILY;
     Route: 048
  2. CLARITHROMYCIN. [Concomitant]
     Active Substance: CLARITHROMYCIN
     Indication: HELICOBACTER INFECTION
     Dosage: 800 MILLIGRAM DAILY;
     Route: 048
  3. TAKECAB [Suspect]
     Active Substance: VONOPRAZAN FUMURATE
     Indication: HELICOBACTER INFECTION
     Dosage: 40 MILLIGRAM DAILY;
     Route: 048

REACTIONS (6)
  - Pruritus [Unknown]
  - Dysgeusia [Unknown]
  - Epigastric discomfort [Unknown]
  - Diarrhoea [Unknown]
  - Rash [Unknown]
  - Haematochezia [Unknown]
